FAERS Safety Report 18954325 (Version 1)
Quarter: 2021Q1

REPORT INFORMATION
  Report Type: Spontaneous
  Country: US (occurrence: US)
  Receive Date: 20210301
  Receipt Date: 20210301
  Transmission Date: 20210420
  Serious: No
  Sender: FDA-Public Use
  Company Number: US-TAKEDA-2021TUS010997

PATIENT
  Sex: Male
  Weight: 66 kg

DRUGS (12)
  1. AGRYLIN [Suspect]
     Active Substance: ANAGRELIDE HYDROCHLORIDE
     Indication: THROMBOCYTOPENIA
     Dosage: 0.5 MILLIGRAM, QD
     Route: 065
     Dates: start: 20151223
  2. SYNTHROID [Concomitant]
     Active Substance: LEVOTHYROXINE SODIUM
  3. ASPIRIN (E.C.) [Concomitant]
     Active Substance: ASPIRIN
  4. TURMERIC [CURCUMA LONGA RHIZOME] [Concomitant]
     Active Substance: HERBALS\TURMERIC
  5. FISH OIL [Concomitant]
     Active Substance: FISH OIL
  6. ISOSORBIDE. [Concomitant]
     Active Substance: ISOSORBIDE
  7. PILOCARPINE. [Concomitant]
     Active Substance: PILOCARPINE
  8. VITAMINS NOS [Concomitant]
     Active Substance: VITAMINS
  9. VITAMIN B [Concomitant]
     Active Substance: VITAMIN B
  10. METOPROLOL. [Concomitant]
     Active Substance: METOPROLOL
  11. VITAMIN D3 [Concomitant]
     Active Substance: CHOLECALCIFEROL
  12. BRILINTA [Concomitant]
     Active Substance: TICAGRELOR

REACTIONS (1)
  - Haemoglobin decreased [Unknown]
